FAERS Safety Report 5286656-2 (Version None)
Quarter: 2007Q2

REPORT INFORMATION
  Report Type: 
  Country: None (occurrence: None)
  Receive Date: 20070404
  Receipt Date: 20070402
  Transmission Date: 20071010
  Serious: Yes (Other)
  Sender: FDA-Public Use
  Company Number: DE-GLAXOSMITHKLINE-D0052798A

PATIENT
  Age: 21 Year
  Sex: Male
  Weight: 100 kg

DRUGS (4)
  1. AUGMENTIN '125' [Suspect]
     Dosage: 10TAB PER DAY
     Route: 048
     Dates: start: 20070301, end: 20070301
  2. ACETAMINOPHEN [Suspect]
     Dosage: 20TAB PER DAY
     Route: 048
     Dates: start: 20070301, end: 20070301
  3. WINE [Suspect]
     Dosage: 1BT PER DAY
     Route: 048
     Dates: start: 20070301, end: 20070301
  4. SPIRITS [Suspect]
     Dosage: .5BT PER DAY
     Route: 048
     Dates: start: 20070301, end: 20070301

REACTIONS (3)
  - INTENTIONAL OVERDOSE [None]
  - SOPOR [None]
  - SUICIDE ATTEMPT [None]
